FAERS Safety Report 21121765 (Version 1)
Quarter: 2022Q3

REPORT INFORMATION
  Report Type: Spontaneous
  Country: US (occurrence: US)
  Receive Date: 20220722
  Receipt Date: 20220722
  Transmission Date: 20221027
  Serious: No
  Sender: FDA-Public Use
  Company Number: US-GILEAD-2022-0590001

PATIENT
  Sex: Male

DRUGS (4)
  1. BIKTARVY [Suspect]
     Active Substance: BICTEGRAVIR SODIUM\EMTRICITABINE\TENOFOVIR ALAFENAMIDE FUMARATE
     Indication: HIV infection
     Route: 065
  2. TRUVADA [Suspect]
     Active Substance: EMTRICITABINE\TENOFOVIR DISOPROXIL FUMARATE
     Indication: HIV infection
     Route: 065
  3. PIFELTRO [Suspect]
     Active Substance: DORAVIRINE
     Indication: HIV infection
     Route: 065
  4. INTELENCE [Suspect]
     Active Substance: ETRAVIRINE
     Indication: HIV infection
     Route: 065

REACTIONS (7)
  - Drug interaction [Unknown]
  - Feeling abnormal [Unknown]
  - Haemorrhoids [Unknown]
  - Gastrointestinal disorder [Unknown]
  - Weight fluctuation [Unknown]
  - Dizziness [Unknown]
  - Flatulence [Unknown]
